FAERS Safety Report 19022195 (Version 1)
Quarter: 2021Q1

REPORT INFORMATION
  Report Type: Report from Study
  Country: None (occurrence: US)
  Receive Date: 20210318
  Receipt Date: 20210318
  Transmission Date: 20210420
  Serious: Yes (Hospitalization)
  Sender: FDA-Public Use
  Company Number: US-ABBVIE-20K-163-3623183-00

PATIENT
  Sex: Female

DRUGS (1)
  1. HUMIRA [Suspect]
     Active Substance: ADALIMUMAB
     Indication: CROHN^S DISEASE
     Dosage: CF
     Route: 058

REACTIONS (6)
  - Dry eye [Unknown]
  - Small intestinal obstruction [Unknown]
  - Abdominal adhesions [Unknown]
  - Therapeutic product effect incomplete [Unknown]
  - Dry mouth [Not Recovered/Not Resolved]
  - Dry mouth [Recovered/Resolved with Sequelae]
